FAERS Safety Report 21338696 (Version 1)
Quarter: 2022Q3

REPORT INFORMATION
  Report Type: Spontaneous
  Country: SE (occurrence: SE)
  Receive Date: 20220915
  Receipt Date: 20220915
  Transmission Date: 20221026
  Serious: Yes (Death, Hospitalization)
  Sender: FDA-Public Use
  Company Number: SE-TEVA-2022-SE-2072262

PATIENT
  Age: 14 Year
  Sex: Male

DRUGS (21)
  1. RISPERIDONE [Suspect]
     Active Substance: RISPERIDONE
     Indication: Panic attack
     Dosage: .25 MILLIGRAM DAILY;
     Route: 065
  2. RISPERIDONE [Suspect]
     Active Substance: RISPERIDONE
     Indication: Neurodegenerative disorder
  3. RISPERIDONE [Suspect]
     Active Substance: RISPERIDONE
     Indication: Hereditary disorder
  4. RISPERIDONE [Suspect]
     Active Substance: RISPERIDONE
     Indication: Hallucination
  5. CLOZAPINE [Suspect]
     Active Substance: CLOZAPINE
     Indication: Panic attack
     Dosage: 25 MILLIGRAM DAILY;
     Route: 065
  6. CLOZAPINE [Suspect]
     Active Substance: CLOZAPINE
     Indication: Neurodegenerative disorder
  7. CLOZAPINE [Suspect]
     Active Substance: CLOZAPINE
     Indication: Hereditary disorder
  8. CLOZAPINE [Suspect]
     Active Substance: CLOZAPINE
     Indication: Hallucination
  9. BRIVARACETAM [Suspect]
     Active Substance: BRIVARACETAM
     Indication: Agitation
     Route: 065
  10. BRIVARACETAM [Suspect]
     Active Substance: BRIVARACETAM
     Indication: Neurodegenerative disorder
  11. BRIVARACETAM [Suspect]
     Active Substance: BRIVARACETAM
     Indication: Hereditary disorder
  12. LAMOTRIGINE [Concomitant]
     Active Substance: LAMOTRIGINE
     Indication: Epilepsy
     Dosage: INITIATED AT THE AGE OF 8.5 YEARS
     Route: 065
  13. LAMOTRIGINE [Concomitant]
     Active Substance: LAMOTRIGINE
     Indication: Neurodegenerative disorder
  14. LAMOTRIGINE [Concomitant]
     Active Substance: LAMOTRIGINE
     Indication: Hereditary disorder
  15. MELATONIN [Concomitant]
     Active Substance: MELATONIN
     Indication: Neurodegenerative disorder
     Dosage: INITIATED AT THE AGE OF 10 YEARS
     Route: 065
  16. MELATONIN [Concomitant]
     Active Substance: MELATONIN
     Indication: Hereditary disorder
  17. LEVETIRACETAM [Concomitant]
     Active Substance: LEVETIRACETAM
     Indication: Epilepsy
     Dosage: INITIATED AT THE AGE OF 11 YEARS
     Route: 065
  18. LEVETIRACETAM [Concomitant]
     Active Substance: LEVETIRACETAM
     Indication: Neurodegenerative disorder
  19. LEVETIRACETAM [Concomitant]
     Active Substance: LEVETIRACETAM
     Indication: Hereditary disorder
  20. PREGABALIN [Concomitant]
     Active Substance: PREGABALIN
     Indication: Neurodegenerative disorder
     Dosage: INITIATED AT THE AGE OF 13 YEARS
     Route: 065
  21. PREGABALIN [Concomitant]
     Active Substance: PREGABALIN
     Indication: Hereditary disorder

REACTIONS (4)
  - Hyperthermia [Fatal]
  - Rhabdomyolysis [Fatal]
  - Neuroleptic malignant syndrome [Fatal]
  - Drug ineffective [Unknown]
